FAERS Safety Report 8307304-0 (Version None)
Quarter: 2012Q2

REPORT INFORMATION
  Report Type: 
  Country: None (occurrence: None)
  Receive Date: 20120424
  Receipt Date: 20120413
  Transmission Date: 20120825
  Serious: Yes (Hospitalization)
  Sender: FDA-Public Use
  Company Number: BE-TEVA-331461ISR

PATIENT
  Age: 66 Year
  Sex: Female

DRUGS (18)
  1. FLUOROURACIL [Suspect]
     Route: 041
     Dates: start: 20120326
  2. LITICAN [Concomitant]
     Indication: NAUSEA
  3. FLUOROURACIL [Suspect]
     Indication: METASTATIC GASTRIC CANCER
     Dosage: CURRENT CYCLE 1, 800 MG/M^2/DAY
     Route: 041
     Dates: start: 20120305, end: 20120310
  4. CISPLATIN [Suspect]
     Route: 041
     Dates: start: 20120326
  5. BICARBONATE BUCCAL = MOUTH WASH [Concomitant]
     Indication: MUCOSAL INFLAMMATION
     Route: 002
     Dates: start: 20120313
  6. ATACAND [Concomitant]
     Indication: HYPERTENSION
     Dates: start: 20050613
  7. ACETAMINOPHEN [Concomitant]
     Indication: HEADACHE
     Dates: start: 20120309
  8. OLAMINE (PIROCTONE ETHANOLAMINE) [Concomitant]
     Indication: DANDRUFF
     Dates: start: 20101208
  9. MOTILIUM [Concomitant]
     Indication: NAUSEA
  10. TRAMADOL HCL [Concomitant]
     Indication: ABDOMINAL PAIN
     Dates: start: 20120312
  11. ZANTAC [Concomitant]
     Indication: DYSPEPSIA
     Dates: start: 20120312, end: 20120313
  12. SYNGEL [Concomitant]
     Indication: OESOPHAGITIS
  13. ORTHO-GYNEST [Concomitant]
     Indication: OOPHORECTOMY
     Dates: start: 20110307
  14. NEUROBION [Concomitant]
     Indication: GASTRECTOMY
     Dates: start: 20100330
  15. MORPHINE [Concomitant]
     Indication: OESOPHAGITIS
  16. CISPLATIN [Suspect]
     Indication: METASTATIC GASTRIC CANCER
     Dosage: CURRENT CYCLE 1, 80 MG/M^2
     Route: 041
     Dates: start: 20120305, end: 20120305
  17. BAREXAL [Concomitant]
     Indication: DIARRHOEA
     Dates: start: 20120305
  18. IMODIUM [Concomitant]
     Indication: DIARRHOEA
     Dates: start: 20120312, end: 20120313

REACTIONS (5)
  - FEBRILE NEUTROPENIA [None]
  - HYPOKALAEMIA [None]
  - DECREASED APPETITE [None]
  - PYREXIA [None]
  - NEUTROPENIA [None]
